FAERS Safety Report 9647073 (Version 1)
Quarter: 2013Q4

REPORT INFORMATION
  Report Type: Spontaneous
  Country: US (occurrence: US)
  Receive Date: 20131027
  Receipt Date: 20131027
  Transmission Date: 20140711
  Serious: No
  Sender: FDA-Public Use
  Company Number: US-PURDUE-USA-2013-0104571

PATIENT
  Age: 60 Year
  Sex: Female

DRUGS (6)
  1. OXYCONTIN (NDA 22-272) [Suspect]
     Indication: PAIN
     Dosage: 40 MG, Q4H
     Route: 048
     Dates: start: 2005
  2. COREG [Concomitant]
     Indication: BLOOD PRESSURE
     Dosage: 1 TABLET, DAILY
     Route: 048
  3. AVAPRO [Concomitant]
     Indication: BLOOD PRESSURE
     Dosage: 300 MG, DAILY
     Route: 048
  4. XANAX [Concomitant]
     Indication: ANXIETY
     Dosage: 1 MG, PRN
     Route: 048
  5. AMBIEN [Concomitant]
     Indication: SLEEP APNOEA SYNDROME
     Dosage: 1 TABLET, PRN
     Route: 048
  6. OXYCODONE HCL IR CAPSULES [Concomitant]
     Indication: BREAKTHROUGH PAIN
     Dosage: 30 MG, PRN
     Route: 048
     Dates: start: 2005

REACTIONS (4)
  - Drug effect decreased [Unknown]
  - Product taste abnormal [Unknown]
  - Flatulence [Unknown]
  - Abdominal discomfort [Unknown]
